FAERS Safety Report 8854315 (Version 1)
Quarter: 2012Q4

REPORT INFORMATION
  Report Type: Spontaneous
  Country: US (occurrence: None)
  Receive Date: 20121019
  Receipt Date: 20121019
  Transmission Date: 20130627
  Serious: Yes (Life-Threatening, Hospitalization)
  Sender: FDA-Public Use
  Company Number: None

PATIENT
  Age: 10 Year
  Sex: Male
  Weight: 41.73 kg

DRUGS (1)
  1. VYVANSE [Suspect]
     Indication: ADHD
     Dates: start: 20121017, end: 20121017

REACTIONS (2)
  - Hypersensitivity [None]
  - Convulsion [None]
